FAERS Safety Report 6893010-6 (Version None)
Quarter: 2010Q3

REPORT INFORMATION
  Report Type: 
  Country: None (occurrence: None)
  Receive Date: 20100731
  Receipt Date: 20081129
  Transmission Date: 20110219
  Serious: No
  Sender: FDA-Public Use
  Company Number: US-PFIZER INC-2008092264

PATIENT
  Sex: Female
  Weight: 54.43 kg

DRUGS (2)
  1. NEURONTIN [Suspect]
     Indication: BACK PAIN
     Dosage: UNK
     Route: 048
     Dates: start: 20050101, end: 20050101
  2. DILANTIN [Concomitant]
     Indication: CONVULSION
     Dates: start: 19600101

REACTIONS (6)
  - ACTIVITIES OF DAILY LIVING IMPAIRED [None]
  - DEPRESSION [None]
  - EYE PAIN [None]
  - FEELING ABNORMAL [None]
  - NECK PAIN [None]
  - THINKING ABNORMAL [None]
